FAERS Safety Report 10530795 (Version 1)
Quarter: 2014Q4

REPORT INFORMATION
  Report Type: Spontaneous
  Country: US (occurrence: US)
  Receive Date: 20141021
  Receipt Date: 20141021
  Transmission Date: 20150528
  Serious: No
  Sender: FDA-Public Use
  Company Number: US-GILEAD-2014-0118910

PATIENT
  Age: 47 Year
  Sex: Female

DRUGS (3)
  1. LETAIRIS [Suspect]
     Active Substance: AMBRISENTAN
     Indication: PRODUCT USED FOR UNKNOWN INDICATION
     Dosage: 10 MG, QD
     Route: 065
     Dates: start: 20120409
  2. ADCIRCA [Concomitant]
     Active Substance: TADALAFIL
  3. NITROBID /00003201/ [Suspect]
     Active Substance: NITROGLYCERIN

REACTIONS (1)
  - Pain in extremity [Unknown]
